FAERS Safety Report 23187376 (Version 1)
Quarter: 2023Q4

REPORT INFORMATION
  Report Type: Spontaneous
  Country: US (occurrence: US)
  Receive Date: 20231115
  Receipt Date: 20231115
  Transmission Date: 20240109
  Serious: No
  Sender: FDA-Public Use
  Company Number: US-MYLANLABS-2023M1119489

PATIENT
  Sex: Female

DRUGS (1)
  1. ESTRADIOL TRANSDERMAL SYSTEM [Suspect]
     Active Substance: ESTRADIOL
     Indication: Menopausal symptoms
     Dosage: UNK (0.0375 MILLIGRAM)
     Route: 062

REACTIONS (8)
  - Breast pain [Recovered/Resolved]
  - Generalised oedema [Recovered/Resolved]
  - Breast swelling [Recovered/Resolved]
  - Peripheral swelling [Recovered/Resolved]
  - Acne [Recovered/Resolved]
  - Alopecia [Recovered/Resolved]
  - Mood swings [Recovered/Resolved]
  - Brain fog [Recovered/Resolved]
